FAERS Safety Report 5163133-0 (Version None)
Quarter: 2006Q4

REPORT INFORMATION
  Report Type: 
  Country: None (occurrence: None)
  Receive Date: 20061204
  Receipt Date: 20061123
  Transmission Date: 20070319
  Serious: Yes (Hospitalization)
  Sender: FDA-Public Use
  Company Number: GB-JNJFOC-20061105432

PATIENT
  Age: 66 Year
  Sex: Female

DRUGS (3)
  1. DURAGESIC-50 [Suspect]
     Indication: DRUG USE FOR UNKNOWN INDICATION
     Route: 062
  2. OXYCONTIN [Concomitant]
     Route: 065
  3. ACETAMINOPHEN [Concomitant]

REACTIONS (5)
  - AGITATION [None]
  - BURNING SENSATION [None]
  - NAUSEA [None]
  - SNEEZING [None]
  - VOMITING [None]
